FAERS Safety Report 9153433 (Version 1)
Quarter: 2013Q1

REPORT INFORMATION
  Report Type: Spontaneous
  Country: US (occurrence: None)
  Receive Date: 20130131
  Receipt Date: 20130131
  Transmission Date: 20140127
  Serious: Yes (Life-Threatening, Hospitalization, Other)
  Sender: FDA-Public Use
  Company Number: 2013SUN00037

PATIENT
  Age: 29 Year
  Sex: Female

DRUGS (2)
  1. BUPROPION HYDROCHLORIDE EXTENDED RELEASE (XL) [Suspect]
     Indication: PRODUCT USED FOR UNKNOWN INDICATION
     Route: 048
  2. GABAPENTIN [Suspect]
     Dosage: 2100 MG, SINGLE, ORAL
     Route: 048

REACTIONS (9)
  - Cardiogenic shock [None]
  - Electroencephalogram abnormal [None]
  - Electrocardiogram QT prolonged [None]
  - Overdose [None]
  - Grand mal convulsion [None]
  - Sinus tachycardia [None]
  - Unresponsive to stimuli [None]
  - Metabolic acidosis [None]
  - Brain death [None]
